FAERS Safety Report 5590031-0 (Version None)
Quarter: 2008Q1

REPORT INFORMATION
  Report Type: 
  Country: None (occurrence: None)
  Receive Date: 20080114
  Receipt Date: 20080107
  Transmission Date: 20080703
  Serious: Yes (Other)
  Sender: FDA-Public Use
  Company Number: NL-ELI_LILLY_AND_COMPANY-NL200801001257

PATIENT
  Sex: Male
  Weight: 70 kg

DRUGS (4)
  1. STRATTERA [Suspect]
     Dosage: UNK, UNKNOWN
  2. STRATTERA [Suspect]
     Dosage: UNK, INCREASED
  3. STRATTERA [Suspect]
     Dosage: 60 MG, UNKNOWN
     Dates: start: 20071015
  4. STRATTERA [Suspect]
     Dosage: 80 MG, UNKNOWN

REACTIONS (7)
  - ABDOMINAL PAIN UPPER [None]
  - BURNING SENSATION [None]
  - DIZZINESS [None]
  - NAUSEA [None]
  - SYNCOPE [None]
  - TONGUE BLISTERING [None]
  - VOMITING [None]
